FAERS Safety Report 13779934 (Version 1)
Quarter: 2017Q3

REPORT INFORMATION
  Report Type: Spontaneous
  Country: FR (occurrence: FR)
  Receive Date: 20170723
  Receipt Date: 20170723
  Transmission Date: 20171127
  Serious: Yes (Life-Threatening)
  Sender: FDA-Public Use
  Company Number: FR-ALSI-201700217

PATIENT
  Age: 78 Year
  Sex: Female

DRUGS (5)
  1. KALINOX, 50:50 NITROUS OXIDE:OXYGEN [Suspect]
     Active Substance: NITROUS OXIDE\OXYGEN
     Indication: DRAIN REMOVAL
     Route: 055
     Dates: start: 20170320, end: 20170320
  2. ACUITEL (QUINAPRIL) [Concomitant]
  3. LEVOTHYROXINE SODIUM. [Concomitant]
     Active Substance: LEVOTHYROXINE SODIUM
  4. BISOPROLOL; HYDROCHLOROTHIAZIDE [Concomitant]
  5. DELURSAN (URSODEOXYCHOLIC ACID) [Concomitant]

REACTIONS (1)
  - Air embolism [Recovered/Resolved]
